FAERS Safety Report 7291565-3 (Version None)
Quarter: 2011Q1

REPORT INFORMATION
  Report Type: 
  Country: None (occurrence: None)
  Receive Date: 20110214
  Receipt Date: 20110203
  Transmission Date: 20110831
  Serious: Yes (Hospitalization)
  Sender: FDA-Public Use
  Company Number: PHHO2010BR11871

PATIENT
  Sex: Male
  Weight: 101 kg

DRUGS (11)
  1. ENALAPRIL MALEATE [Suspect]
     Indication: CARDIAC FAILURE
     Dosage: 20 MG, UNK
     Route: 048
  2. BLINDED NO TREATMENT RECEIVED [Suspect]
     Dosage: CODE NOT BROKEN
     Route: 048
     Dates: start: 20100521, end: 20100705
  3. CARVEDILOL [Concomitant]
     Indication: CARDIAC FAILURE
  4. AMIODARONE [Concomitant]
     Indication: ARRHYTHMIA
  5. ALISKIREN [Suspect]
     Indication: CARDIAC FAILURE
  6. FUROSEMIDE [Concomitant]
     Indication: CARDIAC FAILURE
  7. BLINDED ALISKIREN [Suspect]
     Dosage: CODE NOT BROKEN
     Route: 048
     Dates: start: 20100521, end: 20100705
  8. ENALAPRIL MALEATE [Suspect]
     Dosage: CODE NOT BROKEN
     Route: 048
     Dates: start: 20100521, end: 20100705
  9. ASPIRIN [Concomitant]
     Indication: CORONARY ARTERY DISEASE
     Dosage: UNK
  10. LEVOTHYROXINE SODIUM [Concomitant]
     Indication: HYPOTHYROIDISM
  11. SPIRONOLACTONE [Concomitant]
     Indication: CARDIAC FAILURE

REACTIONS (2)
  - DISEASE PROGRESSION [None]
  - CARDIAC FAILURE [None]
